FAERS Safety Report 6339478-5 (Version None)
Quarter: 2009Q3

REPORT INFORMATION
  Report Type: 
  Country: None (occurrence: None)
  Receive Date: 20090903
  Receipt Date: 20090827
  Transmission Date: 20100115
  Serious: Yes (Other)
  Sender: FDA-Public Use
  Company Number: JP-ABBOTT-09P-087-0593887-00

PATIENT
  Age: 29 Year
  Sex: Female

DRUGS (10)
  1. CYCLOSPORINE [Suspect]
     Indication: HEPATIC FUNCTION ABNORMAL
  2. CYCLOSPORINE [Suspect]
  3. PREDNISOLONE [Concomitant]
     Indication: DRUG USE FOR UNKNOWN INDICATION
  4. PREDNISOLONE [Concomitant]
  5. DEXAMETHASONE [Concomitant]
     Indication: DRUG USE FOR UNKNOWN INDICATION
     Route: 048
  6. DEXAMETHASONE [Concomitant]
     Route: 042
  7. DEXAMETHASONE [Concomitant]
  8. TOCILIXUMAB [Concomitant]
     Indication: DRUG USE FOR UNKNOWN INDICATION
     Route: 042
  9. TOCILIXUMAB [Concomitant]
     Dosage: NOT REPORTED
  10. TOCILIXUMAB [Concomitant]
     Dosage: NOT REPORTED

REACTIONS (1)
  - STILL'S DISEASE ADULT ONSET [None]
